FAERS Safety Report 9890963 (Version 1)
Quarter: 2014Q1

REPORT INFORMATION
  Report Type: Other
  Country: US (occurrence: US)
  Receive Date: 20140212
  Receipt Date: 20140212
  Transmission Date: 20141002
  Serious: Yes (Other)
  Sender: FDA-Public Use
  Company Number: US-ABBVIE-14P-163-1199174-00

PATIENT
  Age: 4 Year
  Sex: Female

DRUGS (12)
  1. DEPAKOTE [Suspect]
     Indication: CONVULSION
  2. KEPPRA [Suspect]
     Indication: CONVULSION
  3. PHENOBARBITAL [Suspect]
     Indication: CONVULSION
  4. LAMICTAL [Suspect]
     Indication: CONVULSION
  5. TOPAMAX [Suspect]
     Indication: CONVULSION
  6. TRILEPTAL [Suspect]
     Indication: CONVULSION
  7. VIMPAT [Suspect]
     Indication: CONVULSION
  8. CARBATROL [Suspect]
     Indication: CONVULSION
  9. VALIUM [Suspect]
     Indication: CONVULSION
  10. ONFI [Suspect]
     Indication: CONVULSION
  11. LEUKOVORIN [Suspect]
     Indication: CONVULSION
  12. HIGH DOSE B6 [Suspect]
     Indication: CONVULSION

REACTIONS (3)
  - Epilepsy [Unknown]
  - Drug ineffective [Unknown]
  - Adverse drug reaction [Unknown]
